FAERS Safety Report 18781462 (Version 1)
Quarter: 2021Q1

REPORT INFORMATION
  Report Type: Spontaneous
  Country: US (occurrence: US)
  Receive Date: 20210125
  Receipt Date: 20210125
  Transmission Date: 20210419
  Serious: Yes (Other)
  Sender: FDA-Public Use
  Company Number: US-NOVAST LABORATORIES LTD.-2021NOV000005

PATIENT

DRUGS (1)
  1. LARIN FE 1/20 [Suspect]
     Active Substance: ETHINYL ESTRADIOL\NORETHINDRONE ACETATE
     Indication: PRODUCT USED FOR UNKNOWN INDICATION
     Dosage: UNK UNKNOWN
     Route: 048

REACTIONS (4)
  - Condition aggravated [Unknown]
  - Gastric ulcer [Unknown]
  - Coeliac disease [Unknown]
  - Gluten sensitivity [Unknown]
